FAERS Safety Report 23489474 (Version 1)
Quarter: 2024Q1

REPORT INFORMATION
  Report Type: Spontaneous
  Country: US (occurrence: None)
  Receive Date: 20240206
  Receipt Date: 20240206
  Transmission Date: 20240410
  Serious: No
  Sender: FDA-Public Use
  Company Number: US-ROCHE-3457169

PATIENT
  Sex: Female

DRUGS (1)
  1. XOLAIR [Suspect]
     Active Substance: OMALIZUMAB
     Indication: Product used for unknown indication
     Route: 065

REACTIONS (7)
  - Hangover [Unknown]
  - Fatigue [Unknown]
  - Arthralgia [Unknown]
  - Pruritus [Unknown]
  - Periorbital swelling [Unknown]
  - Myalgia [Unknown]
  - Nausea [Unknown]
